FAERS Safety Report 7116730-7 (Version None)
Quarter: 2010Q4

REPORT INFORMATION
  Report Type: 
  Country: None (occurrence: None)
  Receive Date: 20101122
  Receipt Date: 20101112
  Transmission Date: 20110411
  Serious: Yes (Hospitalization)
  Sender: FDA-Public Use
  Company Number: PHHY2010CO77664

PATIENT
  Sex: Female

DRUGS (4)
  1. FORADIL [Suspect]
     Indication: ASTHMA
     Dosage: TWICE
     Route: 048
     Dates: start: 20040601
  2. SALBUTAMOL [Concomitant]
  3. LORATADINA [Concomitant]
  4. KETOTIFEN FUMARATE [Concomitant]

REACTIONS (6)
  - CORNEAL DISORDER [None]
  - CORNEAL IMPLANT [None]
  - DEVICE RELATED INFECTION [None]
  - HERNIA HIATUS REPAIR [None]
  - HIATUS HERNIA [None]
  - SURGERY [None]
